FAERS Safety Report 13678987 (Version 1)
Quarter: 2017Q2

REPORT INFORMATION
  Report Type: Spontaneous
  Country: CH (occurrence: CH)
  Receive Date: 20170622
  Receipt Date: 20170622
  Transmission Date: 20170830
  Serious: Yes (Hospitalization)
  Sender: FDA-Public Use
  Company Number: CH-PFIZER INC-2017269272

PATIENT
  Age: 86 Year
  Sex: Female

DRUGS (7)
  1. MODURETIC MITE ^MSD^ [Suspect]
     Active Substance: AMILORIDE HYDROCHLORIDE\HYDROCHLOROTHIAZIDE
     Dosage: 1 DF, UNK
     Route: 048
     Dates: start: 20170518, end: 20170519
  2. TRIATEC [Suspect]
     Active Substance: RAMIPRIL
     Dosage: 2.5 MG, DAILY
     Route: 048
     Dates: end: 20170521
  3. CAPTOPRIL. [Suspect]
     Active Substance: CAPTOPRIL
     Dosage: 12.5 MG, DAILY
     Route: 048
     Dates: end: 20170521
  4. LEXOTANIL [Concomitant]
     Active Substance: BROMAZEPAM
     Dosage: 0.75 MG, 1X/DAY
  5. SOTALOL ^MEPHA^ [Concomitant]
     Dosage: 40 MG, 2X/DAY
  6. ASPIRIN CARDIO [Concomitant]
     Active Substance: ASPIRIN
     Dosage: 100 MG, 1X/DAY
  7. PANTOZOL [Concomitant]
     Active Substance: PANTOPRAZOLE SODIUM
     Dosage: 40 MG, 1X/DAY

REACTIONS (3)
  - Atrioventricular block first degree [Unknown]
  - Polydipsia [Recovered/Resolved]
  - Hyponatraemia [Recovering/Resolving]

NARRATIVE: CASE EVENT DATE: 20170518
